FAERS Safety Report 21110355 (Version 3)
Quarter: 2022Q3

REPORT INFORMATION
  Report Type: Spontaneous
  Country: IN (occurrence: IN)
  Receive Date: 20220721
  Receipt Date: 20220729
  Transmission Date: 20221027
  Serious: No
  Sender: FDA-Public Use
  Company Number: IN-LUPIN LIMITED-2022-09584

PATIENT
  Age: 55 Year
  Sex: Male
  Weight: 72 kg

DRUGS (6)
  1. POLYETHYLENE GLYCOL 3350\POTASSIUM CHLORIDE\SODIUM BICARBONATE\SODIUM [Suspect]
     Active Substance: POLYETHYLENE GLYCOL 3350\POTASSIUM CHLORIDE\SODIUM BICARBONATE\SODIUM CHLORIDE
     Indication: Constipation
     Dosage: UNK, QD (ONCE DAILY IN THE EVENING)
     Route: 048
     Dates: start: 202207, end: 20220713
  2. ZORYL-M [Concomitant]
     Indication: Diabetes mellitus
     Dosage: UNK, QD (ONCE DAILY AT NIGHT)
     Route: 065
  3. METFORMIN HYDROCHLORIDE\VILDAGLIPTIN [Concomitant]
     Active Substance: METFORMIN HYDROCHLORIDE\VILDAGLIPTIN
     Indication: Diabetes mellitus
     Dosage: UNK, QD ( ONE TIME AT NIGHT)
     Route: 065
  4. GLIMP MP2 [Concomitant]
     Indication: Diabetes mellitus
     Dosage: UNK, QD (ONE TIME BEFORE MEAL IN THE MORNING)
     Route: 065
  5. EMIGO [Concomitant]
     Indication: Product used for unknown indication
     Dosage: UNK
     Route: 065
  6. ESIUM [Concomitant]
     Indication: Product used for unknown indication
     Dosage: 4 DOSAGE FORM, QD (2 SMALL TABLETS AT NIGHT AND 2 BIG TABLETS IN THE MORNING)
     Route: 065

REACTIONS (2)
  - Blood glucose increased [Not Recovered/Not Resolved]
  - Pain [Not Recovered/Not Resolved]

NARRATIVE: CASE EVENT DATE: 20220701
